FAERS Safety Report 13681093 (Version 2)
Quarter: 2017Q3

REPORT INFORMATION
  Report Type: Spontaneous
  Country: US (occurrence: US)
  Receive Date: 20170623
  Receipt Date: 20170719
  Transmission Date: 20171127
  Serious: Yes (Other)
  Sender: FDA-Public Use
  Company Number: US-ABBVIE-17K-163-2013284-00

PATIENT
  Sex: Male

DRUGS (1)
  1. ANDROGEL [Suspect]
     Active Substance: TESTOSTERONE
     Indication: ANDROGEN REPLACEMENT THERAPY
     Route: 061
     Dates: start: 20070911, end: 20140904

REACTIONS (6)
  - Coronary artery thrombosis [Recovered/Resolved]
  - Coronary artery thrombosis [Recovered/Resolved]
  - Coronary artery restenosis [Recovered/Resolved]
  - Coronary artery restenosis [Recovered/Resolved]
  - Coronary artery thrombosis [Unknown]
  - Coronary artery restenosis [Unknown]

NARRATIVE: CASE EVENT DATE: 20110407
